FAERS Safety Report 5674050-1 (Version None)
Quarter: 2008Q1

REPORT INFORMATION
  Report Type: 
  Country: None (occurrence: None)
  Receive Date: 20080317
  Receipt Date: 20080312
  Transmission Date: 20080703
  Serious: Yes (Other)
  Sender: FDA-Public Use
  Company Number: 17235

PATIENT
  Age: 40 Year
  Sex: Female

DRUGS (1)
  1. ANZATAX. MFR: MAYNE [Suspect]
     Indication: OVARIAN CANCER
     Dosage: 320 MG IV
     Route: 042
     Dates: start: 20070621, end: 20070621

REACTIONS (2)
  - HYPOTENSION [None]
  - LARYNGOSPASM [None]
